FAERS Safety Report 5800358-2 (Version None)
Quarter: 2008Q3

REPORT INFORMATION
  Report Type: 
  Country: None (occurrence: None)
  Receive Date: 20080702
  Receipt Date: 20080702
  Transmission Date: 20090109
  Serious: No
  Sender: FDA-Public Use
  Company Number: None

PATIENT
  Age: 50 Year
  Sex: Male
  Weight: 90.7194 kg

DRUGS (2)
  1. SEPTOCAINE [Suspect]
     Indication: GINGIVAL DISORDER
     Dosage: 3.6 ML IM
     Route: 030
     Dates: start: 20080522, end: 20080522
  2. SEPTOCAINE [Suspect]
     Indication: TOOTH REPAIR
     Dosage: 3.6 ML IM
     Route: 030
     Dates: start: 20080522, end: 20080522

REACTIONS (1)
  - PARAESTHESIA ORAL [None]
